FAERS Safety Report 10484319 (Version 2)
Quarter: 2014Q4

REPORT INFORMATION
  Report Type: Spontaneous
  Country: US (occurrence: US)
  Receive Date: 20140930
  Receipt Date: 20141105
  Transmission Date: 20150528
  Serious: Yes (Other)
  Sender: FDA-Public Use
  Company Number: US-PFIZER INC-2014268956

PATIENT
  Age: 65 Year
  Sex: Female
  Weight: 58.5 kg

DRUGS (5)
  1. DILANTIN [Suspect]
     Active Substance: PHENYTOIN
     Indication: EPILEPSY
     Dosage: 100 MG, 3X/DAY
     Dates: start: 1977
  2. MYSOLINE [Suspect]
     Active Substance: PRIMIDONE
     Indication: EPILEPSY
     Dosage: UNK (2.5, 250 MG TABLET), 1X/DAY
  3. FYCOMPA [Suspect]
     Active Substance: PERAMPANEL
     Dosage: UNK
  4. VITAMIN D [Concomitant]
     Active Substance: CHOLECALCIFEROL
     Dosage: UNK
  5. PHENYTOIN. [Suspect]
     Active Substance: PHENYTOIN
     Dosage: UNK
     Route: 048

REACTIONS (15)
  - Gait disturbance [Unknown]
  - Confusional state [Unknown]
  - Drug tolerance [Unknown]
  - Haematoma [Recovered/Resolved]
  - Balance disorder [Unknown]
  - Osteoporosis [Unknown]
  - Weight increased [Unknown]
  - Upper limb fracture [Unknown]
  - Overdose [Unknown]
  - Body height decreased [Unknown]
  - Drug ineffective [Unknown]
  - Anticonvulsant drug level decreased [Unknown]
  - Fall [Unknown]
  - Drug intolerance [Unknown]
  - Dizziness [Unknown]

NARRATIVE: CASE EVENT DATE: 20140625
